FAERS Safety Report 10967680 (Version 1)
Quarter: 2015Q1

REPORT INFORMATION
  Report Type: Spontaneous
  Country: US (occurrence: US)
  Receive Date: 20150330
  Receipt Date: 20150330
  Transmission Date: 20150721
  Serious: No
  Sender: FDA-Public Use
  Company Number: US-ASTRAZENECA-2014SE18454

PATIENT
  Age: 50 Year
  Sex: Female
  Weight: 74.8 kg

DRUGS (5)
  1. NEXIUM [Suspect]
     Active Substance: ESOMEPRAZOLE MAGNESIUM
     Indication: GASTROOESOPHAGEAL REFLUX DISEASE
     Route: 048
  2. XOPENEX [Concomitant]
     Active Substance: LEVALBUTEROL HYDROCHLORIDE
     Indication: PAROSMIA
     Dosage: 45 MCG PRN
     Route: 055
     Dates: start: 2013
  3. DYNAMISTA [Concomitant]
     Indication: HYPERSENSITIVITY
     Dosage: DAILY
     Route: 045
  4. ZYRTEC [Concomitant]
     Active Substance: CETIRIZINE HYDROCHLORIDE
     Indication: HYPERSENSITIVITY
     Dosage: 0.5 TO 1 TAB PRN
     Route: 048
  5. MIRALAX [Concomitant]
     Active Substance: POLYETHYLENE GLYCOL 3350
     Indication: FAECES HARD
     Dosage: UNKNOWN PRN
     Route: 048

REACTIONS (4)
  - Drug ineffective [Unknown]
  - Parosmia [Unknown]
  - Intentional product misuse [Unknown]
  - Oesophageal pain [Unknown]

NARRATIVE: CASE EVENT DATE: 2013
